FAERS Safety Report 6235655-2 (Version None)
Quarter: 2009Q2

REPORT INFORMATION
  Report Type: 
  Country: None (occurrence: None)
  Receive Date: 20090616
  Receipt Date: 20090604
  Transmission Date: 20091009
  Serious: Yes (Hospitalization)
  Sender: FDA-Public Use
  Company Number: 236279K09USA

PATIENT
  Age: 42 Year
  Sex: Female
  Weight: 113 kg

DRUGS (3)
  1. REBIF [Suspect]
     Indication: MULTIPLE SCLEROSIS
     Dosage: 44 MCG, 3 IN 1 WEEKS, SUBCUTANEOUS
     Route: 058
     Dates: start: 20090327, end: 20090101
  2. UNSPECIFIED HIGH BLOOD PRESSURE MEDICATION (ALL OTHER THERAPEUTIC PROD [Concomitant]
  3. UNSPECIFIED HIGH CHOLESTEROL MEDICATION (ALL OTHER THERAPEUTIC PRODUCT [Concomitant]

REACTIONS (2)
  - PNEUMONIA [None]
  - TREATMENT NONCOMPLIANCE [None]
